FAERS Safety Report 15398265 (Version 1)
Quarter: 2018Q3

REPORT INFORMATION
  Report Type: Spontaneous
  Country: US (occurrence: US)
  Receive Date: 20180918
  Receipt Date: 20180918
  Transmission Date: 20181010
  Serious: No
  Sender: FDA-Public Use
  Company Number: US-ENDO PHARMACEUTICALS INC-2018-014775

PATIENT
  Sex: Male

DRUGS (1)
  1. CLOMIPHENE CITRATE. [Suspect]
     Active Substance: CLOMIPHENE CITRATE
     Indication: TESTICULAR DISORDER
     Dosage: 1 DF, THREE TMES A WEEK
     Route: 048
     Dates: start: 201712, end: 201801

REACTIONS (3)
  - Dry skin [Unknown]
  - Rash pruritic [Unknown]
  - Off label use [Recovered/Resolved]

NARRATIVE: CASE EVENT DATE: 201712
